FAERS Safety Report 9285456 (Version 1)
Quarter: 2013Q2

REPORT INFORMATION
  Report Type: Spontaneous
  Country: US (occurrence: None)
  Receive Date: 20130510
  Receipt Date: 20130510
  Transmission Date: 20140414
  Serious: Yes (Death, Hospitalization)
  Sender: FDA-Public Use
  Company Number: None

PATIENT
  Age: 76 Year
  Sex: Male
  Weight: 90 kg

DRUGS (16)
  1. COUMADIN [Suspect]
     Indication: ATRIAL FIBRILLATION
     Dosage: 7.5MG  /  10MG    STWFS / MTH   PO?CHRONIC
     Route: 048
  2. ASA [Suspect]
     Indication: CORONARY ARTERY DISEASE
     Dosage: 81MG  DAILY  PO?CHRONIC
     Route: 048
  3. CRESTOR [Concomitant]
  4. ATROVENT [Concomitant]
  5. FUROSEMIDE [Concomitant]
  6. NTG [Concomitant]
  7. MVI [Concomitant]
  8. ADVAIR [Concomitant]
  9. ARICEPT [Concomitant]
  10. MUCINEX [Concomitant]
  11. ALBUTEROL [Concomitant]
  12. CARVEDILOL [Concomitant]
  13. LEVAQUIN [Concomitant]
  14. LEVAQUIN [Concomitant]
  15. KLOR-CON [Concomitant]
  16. VERAPAMIL [Concomitant]

REACTIONS (7)
  - International normalised ratio increased [None]
  - Retroperitoneal haematoma [None]
  - Anaemia [None]
  - Coagulopathy [None]
  - Hypothermia [None]
  - Aortic aneurysm rupture [None]
  - Wound haemorrhage [None]
